FAERS Safety Report 6066561-4 (Version None)
Quarter: 2009Q1

REPORT INFORMATION
  Report Type: 
  Country: None (occurrence: None)
  Receive Date: 20090205
  Receipt Date: 20090130
  Transmission Date: 20090719
  Serious: Yes (Hospitalization)
  Sender: FDA-Public Use
  Company Number: A0758150A

PATIENT
  Age: 64 Year
  Sex: Male
  Weight: 81.8 kg

DRUGS (6)
  1. AVANDAMET [Suspect]
     Route: 048
     Dates: start: 20050221, end: 20050519
  2. AVANDIA [Suspect]
     Dosage: 4MG PER DAY
     Route: 048
     Dates: start: 20050520, end: 20060105
  3. AVANDARYL [Suspect]
     Dosage: 2MG PER DAY
     Route: 048
     Dates: start: 20060519, end: 20070117
  4. METFORMIN [Concomitant]
  5. ASPIRIN [Concomitant]
  6. FISH OIL [Concomitant]

REACTIONS (1)
  - MYOCARDIAL INFARCTION [None]
